FAERS Safety Report 19562596 (Version 1)
Quarter: 2021Q3

REPORT INFORMATION
  Report Type: Report from Study
  Country: SV (occurrence: SV)
  Receive Date: 20210715
  Receipt Date: 20210715
  Transmission Date: 20211014
  Serious: Yes (Other)
  Sender: FDA-Public Use
  Company Number: SV-BAYER-2021-172960

PATIENT
  Age: 35 Year
  Sex: Female
  Weight: 106 kg

DRUGS (1)
  1. MIRENA [Suspect]
     Active Substance: LEVONORGESTREL
     Indication: CONTRACEPTION
     Dosage: 20  ?G PER DAY CONTINUOUSLY
     Route: 015
     Dates: start: 20210503, end: 20210610

REACTIONS (4)
  - Ovarian cyst [None]
  - Device expulsion [Recovered/Resolved]
  - Uterine haemorrhage [None]
  - Adnexal torsion [None]

NARRATIVE: CASE EVENT DATE: 20210503
